FAERS Safety Report 16713825 (Version 2)
Quarter: 2020Q3

REPORT INFORMATION
  Report Type: Spontaneous
  Country: US (occurrence: US)
  Receive Date: 20190819
  Receipt Date: 20200903
  Transmission Date: 20201102
  Serious: Yes (Other)
  Sender: FDA-Public Use
  Company Number: US-CIPLA LTD.-2019US05794

PATIENT

DRUGS (3)
  1. ERENUMAB [Interacting]
     Active Substance: ERENUMAB
     Indication: MIGRAINE WITHOUT AURA
     Dosage: 70 MILLIGRAM, UNK
     Route: 065
  2. ETHINYLESTRADIOL;NORETHINDRONE [Suspect]
     Active Substance: ETHINYL ESTRADIOL\NORETHINDRONE
     Indication: ORAL CONTRACEPTION
     Dosage: 1?MG NORETHINDRONE/20?MCG ETHINYL ESTRADIOL, UNK
     Route: 048
  3. RIZATRIPTAN. [Suspect]
     Active Substance: RIZATRIPTAN
     Indication: MIGRAINE WITHOUT AURA
     Dosage: UNK
     Route: 065

REACTIONS (2)
  - Ischaemic stroke [Recovered/Resolved]
  - Drug interaction [Unknown]
